FAERS Safety Report 6653407-6 (Version None)
Quarter: 2010Q1

REPORT INFORMATION
  Report Type: 
  Country: None (occurrence: None)
  Receive Date: 20100326
  Receipt Date: 20100317
  Transmission Date: 20100710
  Serious: Yes (Other)
  Sender: FDA-Public Use
  Company Number: PHHY2010DE17072

PATIENT

DRUGS (1)
  1. ZOMETA [Suspect]
     Indication: BREAST CANCER
     Route: 042

REACTIONS (1)
  - FOOT FRACTURE [None]
